FAERS Safety Report 11391191 (Version 1)
Quarter: 2015Q3

REPORT INFORMATION
  Report Type: Spontaneous
  Country: ES (occurrence: None)
  Receive Date: 20150813
  Receipt Date: 20150813
  Transmission Date: 20151125
  Serious: Yes (Other)
  Sender: FDA-Public Use
  Company Number: IPC201508-000513

PATIENT
  Age: 31 Year
  Sex: Female

DRUGS (5)
  1. LABETALOL (LABETALOL) (LABETALOL) [Suspect]
     Active Substance: LABETALOL HYDROCHLORIDE
     Indication: HYPERTENSION
  2. HYDRALAZINE (HYDRALAZINE) (HYDRALAZINE) [Concomitant]
  3. METAMIZOLE (METAMIZOLE) (METAMIZOLE) [Concomitant]
  4. ALPHA-METHYLDOPA (ALPHA- METHYLDOPA) (ALPHA-METHYLDOPA) [Concomitant]
  5. ATENOLOL. [Suspect]
     Active Substance: ATENOLOL

REACTIONS (2)
  - Drug cross-reactivity [None]
  - Acute generalised exanthematous pustulosis [None]
